FAERS Safety Report 8395065-9 (Version None)
Quarter: 2012Q1

REPORT INFORMATION
  Report Type: 
  Country: None (occurrence: None)
  Receive Date: 20120323
  Receipt Date: 20110413
  Transmission Date: 20120608
  Serious: Yes (Hospitalization, Disabling)
  Sender: FDA-Public Use
  Company Number: 163-21880-11040128

PATIENT
  Age: 69 Year
  Sex: Female

DRUGS (10)
  1. METOPROLOL TARTRATE [Concomitant]
  2. REVLIMID [Suspect]
     Indication: MONOCLONAL GAMMOPATHY
     Dosage: DAILY X 21 DAYS, PO ; 10 MG, QD X 21 DAYS OFF 1 WEEK, PO
     Route: 048
     Dates: start: 20110101, end: 20110301
  3. REVLIMID [Suspect]
     Indication: MONOCLONAL GAMMOPATHY
     Dosage: DAILY X 21 DAYS, PO ; 10 MG, QD X 21 DAYS OFF 1 WEEK, PO
     Route: 048
     Dates: start: 20110401
  4. RANITIDINE HYDROCHLORIDE [Concomitant]
  5. ANTIBIOTICS (ANTIBIOTICS) [Concomitant]
  6. LISINOPRIL [Concomitant]
  7. LEVOTHYROXINE SODIUM [Concomitant]
  8. DECADRON [Concomitant]
  9. OMEPRAZOLE [Concomitant]
  10. ALPRAZOLAM [Concomitant]

REACTIONS (3)
  - DYSPNOEA [None]
  - HAEMOGLOBIN DECREASED [None]
  - PLATELET COUNT DECREASED [None]
